FAERS Safety Report 12439466 (Version 4)
Quarter: 2017Q1

REPORT INFORMATION
  Report Type: Spontaneous
  Country: PE (occurrence: PE)
  Receive Date: 20160606
  Receipt Date: 20170309
  Transmission Date: 20170428
  Serious: Yes (Other)
  Sender: FDA-Public Use
  Company Number: PE-PFIZER INC-2016281614

PATIENT
  Age: 82 Year
  Sex: Female

DRUGS (2)
  1. LYRICA [Suspect]
     Active Substance: PREGABALIN
     Dosage: 225 MG (75 MG AND 150 MG), DAILY
  2. LYRICA [Suspect]
     Active Substance: PREGABALIN
     Dosage: 375 MG, DAILY

REACTIONS (9)
  - Dysstasia [Unknown]
  - Osteoarthritis [Unknown]
  - Feeling of despair [Unknown]
  - Deafness [Unknown]
  - Speech disorder [Unknown]
  - Limb discomfort [Unknown]
  - Depressed mood [Unknown]
  - Pain in extremity [Unknown]
  - Malaise [Unknown]
